FAERS Safety Report 5079938-0 (Version None)
Quarter: 2006Q3

REPORT INFORMATION
  Report Type: 
  Country: None (occurrence: None)
  Receive Date: 20060815
  Receipt Date: 20060707
  Transmission Date: 20061208
  Serious: Yes (Hospitalization)
  Sender: FDA-Public Use
  Company Number: HQWYE668707JUL06

PATIENT
  Sex: Female
  Weight: 43 kg

DRUGS (7)
  1. ENBREL [Suspect]
     Indication: RHEUMATOID ARTHRITIS
     Route: 058
     Dates: start: 20060407, end: 20060704
  2. PREDNISOLONE [Suspect]
     Indication: RHEUMATOID ARTHRITIS
     Route: 048
  3. GASMOTIN [Concomitant]
     Indication: GASTROINTESTINAL HYPOMOTILITY
     Route: 048
     Dates: start: 20060614
  4. BACTRIM [Concomitant]
     Indication: ANTIBIOTIC PROPHYLAXIS
     Route: 048
     Dates: start: 20060427
  5. RANITIDINE HYDROCHLORIDE [Concomitant]
     Indication: GASTRIC ULCER
     Route: 048
     Dates: start: 20060408
  6. ASPIRIN [Concomitant]
     Route: 048
     Dates: start: 20060307
  7. EVAMYL [Concomitant]
     Indication: INSOMNIA
     Route: 048
     Dates: start: 20060221

REACTIONS (3)
  - PROTEUS INFECTION [None]
  - SEPSIS [None]
  - URINARY TRACT INFECTION [None]
